FAERS Safety Report 5465709-X (Version None)
Quarter: 2007Q3

REPORT INFORMATION
  Report Type: 
  Country: None (occurrence: None)
  Receive Date: 20070919
  Receipt Date: 20070919
  Transmission Date: 20080115
  Serious: Yes (Other)
  Sender: FDA-Public Use
  Company Number: None

PATIENT
  Age: 47 Year
  Sex: Female
  Weight: 81.6475 kg

DRUGS (1)
  1. EQUATE MATURE MULTI-VITMAIN EQUATE/WAL-MART [Suspect]
     Indication: VITAMIN SUPPLEMENTATION
     Dosage: 1 PILL 1 DAILY PO
     Route: 048
     Dates: start: 20070301, end: 20070911

REACTIONS (3)
  - DIZZINESS [None]
  - FATIGUE [None]
  - SOMNOLENCE [None]
